FAERS Safety Report 13984083 (Version 9)
Quarter: 2019Q2

REPORT INFORMATION
  Report Type: Spontaneous
  Country: US (occurrence: US)
  Receive Date: 20170918
  Receipt Date: 20190429
  Transmission Date: 20190711
  Serious: Yes (Hospitalization)
  Sender: FDA-Public Use
  Company Number: US-ACTELION-A-US2017-157927

PATIENT
  Age: 24 Year
  Sex: Male
  Weight: 131.52 kg

DRUGS (5)
  1. VELETRI [Suspect]
     Active Substance: EPOPROSTENOL
     Dosage: 25 NG/KG/MIN
     Route: 042
  2. VELETRI [Suspect]
     Active Substance: EPOPROSTENOL
     Dosage: 18 NG/KG, PER MIN
     Route: 042
  3. VELETRI [Suspect]
     Active Substance: EPOPROSTENOL
     Indication: PULMONARY ARTERIAL HYPERTENSION
     Dosage: 30 NG/KG, PER MIN
     Route: 042
  4. REMODULIN [Concomitant]
     Active Substance: TREPROSTINIL
  5. VELETRI [Suspect]
     Active Substance: EPOPROSTENOL
     Dosage: 9 NG/KG, PER MIN
     Route: 042

REACTIONS (15)
  - Flushing [Unknown]
  - Dyspnoea exertional [Not Recovered/Not Resolved]
  - Device breakage [Unknown]
  - Catheter site haemorrhage [Unknown]
  - Haematochezia [Unknown]
  - Skin swelling [Unknown]
  - Skin irritation [Unknown]
  - Device infusion issue [Unknown]
  - Erythema [Unknown]
  - Dyspnoea [Unknown]
  - Back pain [Unknown]
  - Suture rupture [Unknown]
  - Suture related complication [Unknown]
  - Application site pruritus [Unknown]
  - Pruritus [Unknown]

NARRATIVE: CASE EVENT DATE: 20170804
